FAERS Safety Report 4750109-8 (Version None)
Quarter: 2005Q3

REPORT INFORMATION
  Report Type: 
  Country: None (occurrence: None)
  Receive Date: 20050819
  Receipt Date: 20050801
  Transmission Date: 20060218
  Serious: Yes (Hospitalization, Other)
  Sender: FDA-Public Use
  Company Number: US_0504115795

PATIENT
  Age: 42 Year
  Sex: Male
  Weight: 125 kg

DRUGS (10)
  1. ZYPREXA [Suspect]
     Indication: BIPOLAR DISORDER
     Dosage: 20 MG AT BEDTIME
     Dates: start: 19980101
  2. DEPAKOTE [Concomitant]
  3. SEROQUEL [Concomitant]
  4. HYDROXYZINE [Concomitant]
  5. PROPRANOLOL [Concomitant]
  6. TRAZODONE [Concomitant]
  7. REMERON [Concomitant]
  8. CLONAZEPAM [Concomitant]
  9. SINEMET [Concomitant]
  10. MONOPRIL [Concomitant]

REACTIONS (28)
  - ALCOHOLIC LIVER DISEASE [None]
  - BLOOD PRESSURE INCREASED [None]
  - BLOOD TRIGLYCERIDES INCREASED [None]
  - CERVICAL SPINAL STENOSIS [None]
  - CHEST PAIN [None]
  - DIABETES MELLITUS NON-INSULIN-DEPENDENT [None]
  - DIABETIC NEUROPATHY [None]
  - DIABETIC RETINOPATHY [None]
  - DIPLOPIA [None]
  - DYSLIPIDAEMIA [None]
  - EXOSTOSIS [None]
  - GASTROENTERITIS VIRAL [None]
  - GAZE PALSY [None]
  - HYPOAESTHESIA [None]
  - HYPOTHYROIDISM [None]
  - INTERVERTEBRAL DISC PROTRUSION [None]
  - LIVER FUNCTION TEST ABNORMAL [None]
  - MYOCARDIAL ISCHAEMIA [None]
  - NEUROPATHY [None]
  - PARAESTHESIA [None]
  - RESTLESS LEGS SYNDROME [None]
  - SHOULDER PAIN [None]
  - SPINAL CORD DISORDER [None]
  - SPINAL OSTEOARTHRITIS [None]
  - THERAPY NON-RESPONDER [None]
  - TREATMENT NONCOMPLIANCE [None]
  - VENTRICULAR HYPERTROPHY [None]
  - WEIGHT INCREASED [None]
